FAERS Safety Report 7656780-5 (Version None)
Quarter: 2011Q3

REPORT INFORMATION
  Report Type: 
  Country: None (occurrence: None)
  Receive Date: 20110804
  Receipt Date: 20110726
  Transmission Date: 20111222
  Serious: Yes (Hospitalization, Other)
  Sender: FDA-Public Use
  Company Number: PHHY2011AU69368

PATIENT
  Age: 49 Year
  Sex: Male

DRUGS (5)
  1. VENLAFAXINE [Suspect]
     Dosage: 4.2 G, UNK
  2. VALACICLOVIR [Suspect]
     Dosage: 30 G, UNK
  3. VALACICLOVIR [Suspect]
     Dosage: 500 MG, BID
  4. OLANZAPINE [Suspect]
     Dosage: 2.5 G, UNK
  5. ALCOHOL [Concomitant]

REACTIONS (9)
  - CRYSTALLURIA [None]
  - OVERDOSE [None]
  - THROMBOCYTOPENIA [None]
  - SEDATION [None]
  - TACHYCARDIA [None]
  - LACTIC ACIDOSIS [None]
  - HYPOTENSION [None]
  - RENAL FAILURE ACUTE [None]
  - BLOOD CREATININE INCREASED [None]
